FAERS Safety Report 6423028-9 (Version None)
Quarter: 2009Q4

REPORT INFORMATION
  Report Type: 
  Country: None (occurrence: None)
  Receive Date: 20091102
  Receipt Date: 20091019
  Transmission Date: 20100525
  Serious: Yes (Other)
  Sender: FDA-Public Use
  Company Number: PHEH2009US14033

PATIENT
  Sex: Female

DRUGS (4)
  1. COMBIPATCH [Suspect]
     Dosage: EST0.05/NOR0.14MG, 1 PATCH Q4DAYS
  2. PROZAC [Concomitant]
     Dosage: UNK
     Dates: start: 19950101
  3. CLONAZEPAM [Concomitant]
     Indication: HEAT STROKE
  4. CLONAZEPAM [Concomitant]
     Indication: CONVULSION

REACTIONS (8)
  - ABDOMINAL PAIN [None]
  - ALOPECIA [None]
  - BREAST TENDERNESS [None]
  - DEPRESSION [None]
  - HEADACHE [None]
  - MEMORY IMPAIRMENT [None]
  - VAGINAL HAEMORRHAGE [None]
  - WEIGHT DECREASED [None]
